FAERS Safety Report 8379937-7 (Version None)
Quarter: 2012Q1

REPORT INFORMATION
  Report Type: 
  Country: None (occurrence: None)
  Receive Date: 20120323
  Receipt Date: 20110825
  Transmission Date: 20120608
  Serious: Yes (Hospitalization, Other)
  Sender: FDA-Public Use
  Company Number: 163-21880-11040413

PATIENT
  Age: 66 Year
  Sex: Female

DRUGS (8)
  1. PLAQUENIL [Concomitant]
  2. CLONIDINE [Concomitant]
  3. LOTENSIN HCT (CIBADREX ^CIBA-GEIGY^) [Concomitant]
  4. AMARYL [Concomitant]
  5. REVLIMID [Suspect]
     Indication: MYELODYSPLASTIC SYNDROME
     Dosage: 10 MG, 1 IN 1 D, PO ; 10 MG, 1 IN 1 D, PO
     Route: 048
     Dates: start: 20110317
  6. REVLIMID [Suspect]
     Indication: MYELODYSPLASTIC SYNDROME
     Dosage: 10 MG, 1 IN 1 D, PO ; 10 MG, 1 IN 1 D, PO
     Route: 048
     Dates: start: 20100715
  7. ZOCOR [Concomitant]
  8. METOPROLOL TARTRATE [Concomitant]

REACTIONS (4)
  - PNEUMONIA [None]
  - PLATELET COUNT DECREASED [None]
  - OEDEMA PERIPHERAL [None]
  - HAEMOGLOBIN DECREASED [None]
